FAERS Safety Report 4414077-0 (Version None)
Quarter: 2004Q3

REPORT INFORMATION
  Report Type: 
  Country: None (occurrence: None)
  Receive Date: 20040803
  Receipt Date: 20040726
  Transmission Date: 20050211
  Serious: Yes (Disabling)
  Sender: FDA-Public Use
  Company Number: 200417364GDDC

PATIENT
  Age: 68 Year
  Sex: Female

DRUGS (3)
  1. METRONIDAZOLE [Suspect]
     Indication: ORAL INFECTION
     Route: 048
     Dates: start: 20040707, end: 20040714
  2. PLAVIX [Suspect]
     Route: 048
  3. PERINDOPRIL [Concomitant]

REACTIONS (2)
  - DIARRHOEA [None]
  - VOMITING [None]
